FAERS Safety Report 8035586-1 (Version None)
Quarter: 2012Q1

REPORT INFORMATION
  Report Type: 
  Country: None (occurrence: None)
  Receive Date: 20120110
  Receipt Date: 20120110
  Transmission Date: 20120608
  Serious: Yes (Life-Threatening, Disabling)
  Sender: FDA-Public Use
  Company Number: None

PATIENT
  Age: 23 Year
  Sex: Male
  Weight: 56.8 kg

DRUGS (8)
  1. MEFLOQUINE HYDROCHLORIDE [Suspect]
     Indication: MALARIA PROPHYLAXIS
     Dosage: 250 MG WEEKLY ORAL
     Route: 048
     Dates: start: 20101001
  2. MEFLOQUINE HYDROCHLORIDE [Suspect]
     Indication: MALARIA PROPHYLAXIS
     Dosage: 250 MG WEEKLY ORAL
     Route: 048
     Dates: start: 20100201
  3. BISMUTH SUBSALICYLATE IN OIL INJ [Concomitant]
  4. ERYTHROMYCIN [Concomitant]
  5. DOXYCYCLINE [Concomitant]
  6. PRIMAQUINE [Concomitant]
  7. LINDANE [Concomitant]
  8. OTC ANALGESICS [Concomitant]

REACTIONS (13)
  - NEUROPSYCHIATRIC SYNDROME [None]
  - DEPRESSION [None]
  - INSOMNIA [None]
  - MALAISE [None]
  - LOSS OF EMPLOYMENT [None]
  - ANXIETY [None]
  - VISUAL IMPAIRMENT [None]
  - DIZZINESS [None]
  - PARAESTHESIA [None]
  - SKIN INFECTION [None]
  - TINNITUS [None]
  - HEADACHE [None]
  - PRURITUS [None]
